FAERS Safety Report 8467666 (Version 9)
Quarter: 2012Q4

REPORT INFORMATION
  Report Type: Report from Study
  Country: US (occurrence: US)
  Receive Date: 20120320
  Receipt Date: 20121211
  Transmission Date: 20130627
  Serious: Yes (Hospitalization)
  Sender: FDA-Public Use
  Company Number: US-JNJFOC-20120305141

PATIENT
  Age: 61 Year
  Sex: Male
  Weight: 97.5 kg

DRUGS (6)
  1. ABIRATERONE ACETATE [Suspect]
     Indication: PROSTATE CANCER METASTATIC
     Route: 048
     Dates: start: 20120412, end: 20120830
  2. ABIRATERONE ACETATE [Suspect]
     Indication: PROSTATE CANCER METASTATIC
     Route: 048
     Dates: start: 20120322
  3. ABIRATERONE ACETATE [Suspect]
     Indication: PROSTATE CANCER METASTATIC
     Route: 048
     Dates: start: 20120103, end: 20120311
  4. PREDNISONE [Suspect]
     Indication: PROSTATE CANCER METASTATIC
     Route: 048
     Dates: start: 20111227
  5. DOCETAXEL [Suspect]
     Indication: PROSTATE CANCER METASTATIC
     Dosage: cycle 4
     Route: 042
     Dates: start: 20120228, end: 20120228
  6. DOCETAXEL [Suspect]
     Indication: PROSTATE CANCER METASTATIC
     Dosage: cycle 1
     Route: 042
     Dates: start: 20111227

REACTIONS (2)
  - Febrile neutropenia [Not Recovered/Not Resolved]
  - Pneumonitis [Unknown]
